FAERS Safety Report 24299654 (Version 4)
Quarter: 2024Q4

REPORT INFORMATION
  Report Type: Spontaneous
  Country: US (occurrence: US)
  Receive Date: 20240909
  Receipt Date: 20241218
  Transmission Date: 20250115
  Serious: Yes (Other)
  Sender: PFIZER
  Company Number: US-PFIZER INC-PV202400117763

PATIENT
  Age: 71 Year
  Sex: Female

DRUGS (2)
  1. TUKYSA [Suspect]
     Active Substance: TUCATINIB
     Dosage: 150 MG; 2 TABLETS TWICE DAILY/TAKE TWO 150MG TABLETS BY MOUTH TWICE DAILY
     Route: 048
     Dates: start: 202401
  2. KEPPRA [Concomitant]
     Active Substance: LEVETIRACETAM
     Indication: Seizure
     Dosage: 500 MG, 2X/DAY

REACTIONS (10)
  - Acute kidney injury [Recovered/Resolved]
  - Neuropathy peripheral [Recovering/Resolving]
  - Seasonal allergy [Unknown]
  - Rhinorrhoea [Unknown]
  - Thinking abnormal [Unknown]
  - Diarrhoea [Recovering/Resolving]
  - Blood bilirubin increased [Unknown]
  - Splenic lesion [Unknown]
  - Hepatic cyst [Unknown]
  - Neoplasm progression [Unknown]

NARRATIVE: CASE EVENT DATE: 20241121
